FAERS Safety Report 4324591-4 (Version None)
Quarter: 2004Q1

REPORT INFORMATION
  Report Type: 
  Country: None (occurrence: None)
  Receive Date: 20040323
  Receipt Date: 20040309
  Transmission Date: 20041129
  Serious: Yes (Hospitalization, Disabling, Other)
  Sender: FDA-Public Use
  Company Number: 001-0945-M0000697

PATIENT
  Sex: Male

DRUGS (6)
  1. NEURONTIN [Suspect]
     Indication: BACK PAIN
     Dosage: 400 MG (BID), ORAL
     Route: 048
     Dates: start: 19970506, end: 19971101
  2. VALPROATE SODIUM [Suspect]
     Indication: CONVULSION
  3. BUSPIRONE HCL [Concomitant]
  4. FLUOXETINE HCL [Concomitant]
  5. OMEPRAZOLE [Concomitant]
  6. CAPSAICIN         (CAPSAICIN) [Concomitant]

REACTIONS (37)
  - ACROCHORDON [None]
  - ANGINA UNSTABLE [None]
  - BACK PAIN [None]
  - BLADDER CONSTRICTION [None]
  - BONE DISORDER [None]
  - BRAIN NEOPLASM [None]
  - CARDIAC ARREST [None]
  - COGNITIVE DISORDER [None]
  - CONVERSION DISORDER [None]
  - CONVULSION [None]
  - CORONARY ARTERY DISEASE [None]
  - DISEASE RECURRENCE [None]
  - DIZZINESS [None]
  - DYSPHEMIA [None]
  - ELECTROCARDIOGRAM Q WAVES [None]
  - ELECTROCARDIOGRAM QRS COMPLEX SHORTENED [None]
  - EXCORIATION [None]
  - EXPOSURE TO TOXIC AGENT [None]
  - FATIGUE [None]
  - GALLBLADDER DISORDER [None]
  - HYPOAESTHESIA [None]
  - INTERVERTEBRAL DISC DISPLACEMENT [None]
  - LOWER GASTROINTESTINAL HAEMORRHAGE [None]
  - LYMPHOCYTE COUNT DECREASED [None]
  - MEMORY IMPAIRMENT [None]
  - MOBILITY DECREASED [None]
  - NERVOUS SYSTEM DISORDER [None]
  - PEPTIC ULCER [None]
  - PROTEIN TOTAL DECREASED [None]
  - PRURITUS [None]
  - RED BLOOD CELL SEDIMENTATION RATE INCREASED [None]
  - SCOLIOSIS [None]
  - SKIN LESION [None]
  - SOMNOLENCE [None]
  - SPEECH DISORDER [None]
  - SYNCOPE [None]
  - TREMOR [None]
